FAERS Safety Report 20987724 (Version 1)
Quarter: 2022Q2

REPORT INFORMATION
  Report Type: Spontaneous
  Country: KR (occurrence: KR)
  Receive Date: 20220621
  Receipt Date: 20220621
  Transmission Date: 20220721
  Serious: Yes (Hospitalization)
  Sender: FDA-Public Use
  Company Number: KR-GILEAD-2022-0585971

PATIENT
  Age: 72 Year
  Sex: Male

DRUGS (2)
  1. VEKLURY [Suspect]
     Active Substance: REMDESIVIR
     Indication: COVID-19
     Dosage: LOADING DOSE
     Route: 042
     Dates: start: 20220601, end: 20220601
  2. VEKLURY [Suspect]
     Active Substance: REMDESIVIR
     Dosage: 1 DOSAGE FORM (1 VIAL), QD
     Route: 042
     Dates: start: 20220602, end: 20220603

REACTIONS (1)
  - Condition aggravated [Not Recovered/Not Resolved]

NARRATIVE: CASE EVENT DATE: 20220613
